FAERS Safety Report 14319558 (Version 17)
Quarter: 2018Q4

REPORT INFORMATION
  Report Type: Report from Study
  Country: DE (occurrence: DE)
  Receive Date: 20171222
  Receipt Date: 20181009
  Transmission Date: 20190204
  Serious: Yes (Hospitalization, Other)
  Sender: FDA-Public Use
  Company Number: DE-TEVA-2017-DE-834962

PATIENT
  Age: 60 Year
  Sex: Male
  Weight: 95 kg

DRUGS (41)
  1. FLUOROURACIL. [Suspect]
     Active Substance: FLUOROURACIL
     Dosage: 6400 UNK, UNK
     Route: 065
     Dates: start: 20171001, end: 20171004
  2. BEVACIZUMAB. [Suspect]
     Active Substance: BEVACIZUMAB
     Route: 042
     Dates: start: 20171016, end: 20171016
  3. IRINOTECAN [Concomitant]
     Active Substance: IRINOTECAN
     Dosage: 360 MG, 2X A WEEK
     Route: 042
     Dates: start: 20160704, end: 20161205
  4. FOLINIC ACID [Concomitant]
     Active Substance: LEUCOVORIN
     Indication: COLORECTAL CANCER
     Route: 042
     Dates: start: 20171016, end: 20171016
  5. FLUOROURACIL. [Suspect]
     Active Substance: FLUOROURACIL
     Indication: COLORECTAL CANCER METASTATIC
     Route: 042
     Dates: start: 20171016, end: 20171018
  6. FLUOROURACIL. [Suspect]
     Active Substance: FLUOROURACIL
     Route: 040
     Dates: start: 20171016, end: 20171016
  7. IRINOTECAN [Concomitant]
     Active Substance: IRINOTECAN
     Route: 042
     Dates: start: 20171016, end: 20171016
  8. FLUOROURACIL. [Suspect]
     Active Substance: FLUOROURACIL
     Dosage: BOLUS
     Route: 042
     Dates: start: 20171016, end: 20171016
  9. PEGYLATED LIPOSOMAL IRINOTECAN [Suspect]
     Active Substance: IRINOTECAN HYDROCHLORIDE
     Indication: COLORECTAL CANCER METASTATIC
     Dosage: 360 MG, 2X A WEEK
     Route: 042
     Dates: start: 20160704, end: 20171205
  10. FOLINIC ACID [Suspect]
     Active Substance: LEUCOVORIN
     Indication: COLORECTAL CANCER
     Route: 042
     Dates: start: 20160704, end: 20170410
  11. FOLINIC ACID [Suspect]
     Active Substance: LEUCOVORIN
     Route: 042
     Dates: start: 20171016, end: 20171016
  12. EMEND [Concomitant]
     Active Substance: APREPITANT
     Indication: PROPHYLAXIS OF NAUSEA AND VOMITING
     Dosage: 125/80MG
     Route: 048
     Dates: start: 20160704
  13. NOVALGIN (METAMIZOLE SODIUM) [Concomitant]
     Active Substance: METAMIZOLE SODIUM
     Route: 065
  14. FLUOROURACIL. [Suspect]
     Active Substance: FLUOROURACIL
     Route: 042
     Dates: start: 20170410, end: 20170412
  15. PALONOSETRON. [Suspect]
     Active Substance: PALONOSETRON HYDROCHLORIDE
     Indication: PROPHYLAXIS OF NAUSEA AND VOMITING
  16. FLUOROURACIL. [Suspect]
     Active Substance: FLUOROURACIL
     Route: 042
     Dates: start: 20171002, end: 20171004
  17. BEVACIZUMAB. [Suspect]
     Active Substance: BEVACIZUMAB
     Route: 042
     Dates: start: 20160704, end: 20160704
  18. RAMIPRIL. [Concomitant]
     Active Substance: RAMIPRIL
     Indication: HYPERTENSION
     Dosage: 2.5 MILLIGRAM DAILY;
     Route: 048
     Dates: start: 20170410
  19. MCP [Concomitant]
     Active Substance: METOCLOPRAMIDE HYDROCHLORIDE
     Indication: PRODUCT USED FOR UNKNOWN INDICATION
     Route: 048
     Dates: start: 20171016
  20. NOVALGIN (METAMIZOLE SODIUM) [Concomitant]
     Active Substance: METAMIZOLE SODIUM
     Indication: ANALGESIC THERAPY
     Route: 048
     Dates: start: 20160620
  21. ONDANSETRON [Concomitant]
     Active Substance: ONDANSETRON
     Indication: PROPHYLAXIS OF NAUSEA AND VOMITING
     Route: 042
     Dates: start: 20170116
  22. PALONOSETRON. [Suspect]
     Active Substance: PALONOSETRON HYDROCHLORIDE
     Indication: PRODUCT USED FOR UNKNOWN INDICATION
     Route: 065
     Dates: start: 20171030
  23. MCP [Concomitant]
     Active Substance: METOCLOPRAMIDE HYDROCHLORIDE
     Route: 065
  24. FLUOROURACIL. [Suspect]
     Active Substance: FLUOROURACIL
     Indication: COLORECTAL CANCER
     Dosage: BOLUS
     Route: 040
     Dates: start: 20160704, end: 20161205
  25. FLUOROURACIL. [Suspect]
     Active Substance: FLUOROURACIL
     Dosage: 4800-6400 MG
     Route: 042
     Dates: start: 20160704, end: 20170706
  26. FLUOROURACIL. [Suspect]
     Active Substance: FLUOROURACIL
     Dosage: 4800-6400 MG
     Route: 041
     Dates: start: 20160704
  27. FLUOROURACIL. [Suspect]
     Active Substance: FLUOROURACIL
     Dosage: 4800 UNK, UNK
     Route: 040
     Dates: start: 20171016, end: 20171018
  28. ONDANSETRON [Suspect]
     Active Substance: ONDANSETRON
     Indication: PROPHYLAXIS OF NAUSEA AND VOMITING
     Route: 042
     Dates: start: 20160704, end: 20161206
  29. ONDANSETRON [Suspect]
     Active Substance: ONDANSETRON
     Route: 042
     Dates: start: 20170116
  30. AVASTIN [Suspect]
     Active Substance: BEVACIZUMAB
     Indication: COLORECTAL CANCER METASTATIC
     Route: 042
     Dates: start: 20171016, end: 20171016
  31. AVASTIN [Suspect]
     Active Substance: BEVACIZUMAB
     Route: 042
     Dates: start: 20160704, end: 20160704
  32. BEVACIZUMAB. [Suspect]
     Active Substance: BEVACIZUMAB
     Indication: COLORECTAL CANCER METASTATIC
     Route: 042
     Dates: start: 20171002, end: 20171002
  33. PEGYLATED LIPOSOMAL IRINOTECAN [Suspect]
     Active Substance: IRINOTECAN HYDROCHLORIDE
     Dosage: 360 MG, UNK
     Route: 042
     Dates: start: 20161016, end: 20161016
  34. PEGYLATED LIPOSOMAL IRINOTECAN [Suspect]
     Active Substance: IRINOTECAN HYDROCHLORIDE
     Dosage: 360 MG, 2X A WEEK
     Route: 042
     Dates: start: 20160704, end: 20161205
  35. IRINOTECAN [Concomitant]
     Active Substance: IRINOTECAN
     Indication: COLORECTAL CANCER
     Route: 042
     Dates: start: 20160704, end: 20161205
  36. DEXAMETHASON [Concomitant]
     Active Substance: DEXAMETHASONE
     Route: 042
     Dates: start: 20170116
  37. ONDANSETRON [Suspect]
     Active Substance: ONDANSETRON
     Route: 065
     Dates: start: 20171030
  38. AVASTIN [Suspect]
     Active Substance: BEVACIZUMAB
     Route: 042
     Dates: start: 20171002, end: 20171002
  39. RIVAROXABAN [Suspect]
     Active Substance: RIVAROXABAN
     Indication: DEEP VEIN THROMBOSIS
     Dosage: 20 MILLIGRAM DAILY;
     Route: 048
     Dates: start: 20170524
  40. PEGYLATED LIPOSOMAL IRINOTECAN [Suspect]
     Active Substance: IRINOTECAN HYDROCHLORIDE
     Indication: OFF LABEL USE
     Dosage: 360 MG, UNK
     Route: 042
     Dates: start: 20171016, end: 20171016
  41. DEXAMETHASON [Concomitant]
     Active Substance: DEXAMETHASONE
     Indication: PROPHYLAXIS OF NAUSEA AND VOMITING
     Route: 042
     Dates: start: 20160604, end: 20161206

REACTIONS (7)
  - Nausea [Recovered/Resolved with Sequelae]
  - Haematochezia [Recovered/Resolved]
  - Vomiting [Recovered/Resolved]
  - Off label use [Unknown]
  - Constipation [Recovered/Resolved]
  - Deep vein thrombosis [Recovered/Resolved with Sequelae]
  - Paraesthesia [Recovered/Resolved]

NARRATIVE: CASE EVENT DATE: 20170422
